FAERS Safety Report 10932707 (Version 1)
Quarter: 2015Q1

REPORT INFORMATION
  Report Type: Spontaneous
  Country: US (occurrence: None)
  Receive Date: 20150319
  Receipt Date: 20150319
  Transmission Date: 20150721
  Serious: No
  Sender: FDA-Public Use
  Company Number: None

PATIENT
  Age: 84 Year
  Sex: Female

DRUGS (2)
  1. PROLIA [Suspect]
     Active Substance: DENOSUMAB
     Indication: CHONDROPATHY
     Dosage: EVERY 6 MONTHS
     Route: 058
     Dates: start: 20140522, end: 20150316
  2. PROLIA [Suspect]
     Active Substance: DENOSUMAB
     Indication: BONE DISORDER
     Dosage: EVERY 6 MONTHS
     Route: 058
     Dates: start: 20140522, end: 20150316

REACTIONS (4)
  - Tremor [None]
  - Staphylococcal infection [None]
  - Muscular weakness [None]
  - Skin texture abnormal [None]

NARRATIVE: CASE EVENT DATE: 20150316
